FAERS Safety Report 18447718 (Version 3)
Quarter: 2021Q1

REPORT INFORMATION
  Report Type: Report from Study
  Country: None (occurrence: US)
  Receive Date: 20201031
  Receipt Date: 20210215
  Transmission Date: 20210419
  Serious: Yes (Life-Threatening, Hospitalization)
  Sender: FDA-Public Use
  Company Number: US-ABBVIE-20K-163-3440979-00

PATIENT
  Age: 66 Year
  Sex: Female

DRUGS (3)
  1. HUMIRA [Suspect]
     Active Substance: ADALIMUMAB
     Indication: RHEUMATOID ARTHRITIS
     Route: 058
     Dates: start: 20191016, end: 202009
  2. PREDNISONE. [Concomitant]
     Active Substance: PREDNISONE
     Indication: PRODUCT USED FOR UNKNOWN INDICATION
     Dates: end: 2020
  3. METHOTREXATE. [Concomitant]
     Active Substance: METHOTREXATE
     Indication: PRODUCT USED FOR UNKNOWN INDICATION

REACTIONS (28)
  - Ear pain [Unknown]
  - Impaired self-care [Unknown]
  - Joint swelling [Recovering/Resolving]
  - Pain [Unknown]
  - Therapeutic product effect decreased [Recovering/Resolving]
  - Hypoaesthesia [Unknown]
  - Pain [Recovering/Resolving]
  - Dyspnoea [Unknown]
  - Musculoskeletal stiffness [Not Recovered/Not Resolved]
  - Arthralgia [Recovering/Resolving]
  - Sudden visual loss [Recovered/Resolved]
  - Fatigue [Recovering/Resolving]
  - Swelling [Recovering/Resolving]
  - Peripheral swelling [Not Recovered/Not Resolved]
  - Candida infection [Recovered/Resolved]
  - Oropharyngeal pain [Recovering/Resolving]
  - Headache [Recovering/Resolving]
  - Device difficult to use [Unknown]
  - Paraesthesia [Unknown]
  - Aphasia [Recovered/Resolved]
  - Mobility decreased [Recovering/Resolving]
  - Joint stiffness [Unknown]
  - Chest pain [Recovering/Resolving]
  - Muscle atrophy [Recovering/Resolving]
  - Pharyngeal swelling [Recovered/Resolved]
  - Anaphylactic reaction [Recovered/Resolved]
  - Fatigue [Unknown]
  - Pain in extremity [Recovering/Resolving]

NARRATIVE: CASE EVENT DATE: 2020
